FAERS Safety Report 10255624 (Version 1)
Quarter: 2014Q2

REPORT INFORMATION
  Report Type: Spontaneous
  Country: ES (occurrence: ES)
  Receive Date: 20140624
  Receipt Date: 20140624
  Transmission Date: 20141212
  Serious: Yes (Other)
  Sender: FDA-Public Use
  Company Number: ES-SA-2014SA077463

PATIENT
  Age: 70 Year
  Sex: Female

DRUGS (4)
  1. CLEXANE [Suspect]
     Indication: FOOT FRACTURE
     Route: 058
     Dates: start: 201406, end: 201406
  2. ANTIHYPERTENSIVES [Concomitant]
  3. BETA BLOCKING AGENTS [Concomitant]
  4. HMG COA REDUCTASE INHIBITORS [Concomitant]

REACTIONS (4)
  - Angioedema [Unknown]
  - Oedema [Unknown]
  - Pruritus [Unknown]
  - Erythema [Unknown]
